FAERS Safety Report 12923734 (Version 1)
Quarter: 2016Q4

REPORT INFORMATION
  Report Type: Spontaneous
  Country: FR (occurrence: FR)
  Receive Date: 20161109
  Receipt Date: 20161109
  Transmission Date: 20170207
  Serious: Yes (Hospitalization)
  Sender: FDA-Public Use
  Company Number: FR-WEST-WARD PHARMACEUTICALS CORP.-FR-H14001-16-02356

PATIENT
  Age: 51 Year
  Sex: Male

DRUGS (3)
  1. ARACYTINE [Suspect]
     Active Substance: CYTARABINE
     Indication: ACUTE MYELOID LEUKAEMIA
     Route: 065
     Dates: start: 20080206, end: 2008
  2. ARACYTINE [Suspect]
     Active Substance: CYTARABINE
     Route: 042
     Dates: start: 20080413, end: 20080420
  3. CERUBIDINE [Suspect]
     Active Substance: DAUNORUBICIN HYDROCHLORIDE
     Indication: ACUTE MYELOID LEUKAEMIA
     Route: 042
     Dates: start: 20080413, end: 20080414

REACTIONS (3)
  - Hyperthermia [Recovered/Resolved]
  - Bone marrow failure [Recovered/Resolved]
  - Pseudomonal sepsis [Recovered/Resolved]

NARRATIVE: CASE EVENT DATE: 20080502
